FAERS Safety Report 9330539 (Version 1)
Quarter: 2013Q2

REPORT INFORMATION
  Report Type: Spontaneous
  Country: US (occurrence: None)
  Receive Date: 20130604
  Receipt Date: 20130604
  Transmission Date: 20140414
  Serious: Yes (Hospitalization)
  Sender: FDA-Public Use
  Company Number: None

PATIENT
  Age: 36 Year
  Sex: Male
  Weight: 102.06 kg

DRUGS (1)
  1. CLOZAPINE [Suspect]
     Dosage: 100 MG 5/DAY DO
     Dates: start: 20130523, end: 20130603

REACTIONS (3)
  - Paranoia [None]
  - Delusion [None]
  - Product substitution issue [None]
